FAERS Safety Report 4874889-6 (Version None)
Quarter: 2006Q1

REPORT INFORMATION
  Report Type: 
  Country: None (occurrence: None)
  Receive Date: 20060109
  Receipt Date: 20051215
  Transmission Date: 20060701
  Serious: Yes (Other)
  Sender: FDA-Public Use
  Company Number: PHBS2005CL18602

PATIENT
  Sex: Male

DRUGS (3)
  1. RITALIN LA [Suspect]
     Route: 048
  2. RISPERDAL [Concomitant]
  3. RAVOTRIL [Concomitant]

REACTIONS (1)
  - STATUS EPILEPTICUS [None]
